FAERS Safety Report 9395552 (Version 1)
Quarter: 2013Q3

REPORT INFORMATION
  Report Type: Spontaneous
  Country: IT (occurrence: IT)
  Receive Date: 20130705
  Receipt Date: 20130705
  Transmission Date: 20140515
  Serious: Yes (Hospitalization)
  Sender: FDA-Public Use
  Company Number: 2013P1010798

PATIENT
  Age: 23 Year
  Sex: Female

DRUGS (1)
  1. PROGESTERONE [Suspect]
     Indication: PROPHYLAXIS
     Route: 067

REACTIONS (3)
  - Abortion spontaneous [None]
  - Maternal drugs affecting foetus [None]
  - Angioedema [None]
